FAERS Safety Report 5491418-7 (Version None)
Quarter: 2007Q4

REPORT INFORMATION
  Report Type: 
  Country: None (occurrence: None)
  Receive Date: 20071018
  Receipt Date: 20071003
  Transmission Date: 20080405
  Serious: Yes (Life-Threatening, Hospitalization)
  Sender: FDA-Public Use
  Company Number: 2007S1009785

PATIENT
  Age: 15 Year
  Sex: Female

DRUGS (2)
  1. ISOTRETINOIN [Suspect]
     Indication: ACNE
     Dosage: 0.5 MG/KG;, 1.0 MG/KG;
  2. ISOTRETINOIN [Suspect]
     Indication: ACNE
     Dosage: 0.5 MG/KG;, 1.0 MG/KG;

REACTIONS (5)
  - FEBRILE NEUTROPENIA [None]
  - ODYNOPHAGIA [None]
  - PHARYNGEAL ERYTHEMA [None]
  - PLATELET COUNT DECREASED [None]
  - WHITE BLOOD CELL COUNT DECREASED [None]
